FAERS Safety Report 18611892 (Version 1)
Quarter: 2020Q4

REPORT INFORMATION
  Report Type: Spontaneous
  Country: US (occurrence: US)
  Receive Date: 20201214
  Receipt Date: 20201214
  Transmission Date: 20210114
  Serious: Yes (Hospitalization)
  Sender: FDA-Public Use
  Company Number: US-ELI_LILLY_AND_COMPANY-US202012004827

PATIENT
  Age: 72 Year
  Sex: Male

DRUGS (1)
  1. HUMALOG KWIKPEN [Suspect]
     Active Substance: INSULIN LISPRO
     Indication: PRODUCT USED FOR UNKNOWN INDICATION
     Dosage: 4 U, TID, BEFORE MEALS
     Route: 058
     Dates: start: 2005

REACTIONS (8)
  - Dyspnoea [Recovered/Resolved]
  - Back disorder [Not Recovered/Not Resolved]
  - SARS-CoV-2 test false positive [Unknown]
  - Visual impairment [Not Recovered/Not Resolved]
  - Heart rate increased [Recovered/Resolved]
  - Gait disturbance [Not Recovered/Not Resolved]
  - COVID-19 [Recovering/Resolving]
  - Blood pressure increased [Recovered/Resolved]
